FAERS Safety Report 4635080-1 (Version None)
Quarter: 2005Q2

REPORT INFORMATION
  Report Type: 
  Country: None (occurrence: None)
  Receive Date: 20050414
  Receipt Date: 20050404
  Transmission Date: 20051028
  Serious: Yes (Hospitalization)
  Sender: FDA-Public Use
  Company Number: JP-ROCHE-401362

PATIENT
  Age: 39 Year
  Sex: Female

DRUGS (2)
  1. TAMIFLU [Suspect]
     Route: 048
     Dates: start: 20050309, end: 20050315
  2. ANTIPYRETIC AGENTS NOS [Concomitant]
     Dates: start: 20050309

REACTIONS (1)
  - ORTHOSTATIC HYPOTENSION [None]
